FAERS Safety Report 10694678 (Version 4)
Quarter: 2015Q1

REPORT INFORMATION
  Report Type: Spontaneous
  Country: US (occurrence: US)
  Receive Date: 20150107
  Receipt Date: 20150304
  Transmission Date: 20150721
  Serious: Yes (Other)
  Sender: FDA-Public Use
  Company Number: US-BAYER-2014-191279

PATIENT
  Age: 30 Year
  Sex: Female

DRUGS (1)
  1. MIRENA [Suspect]
     Active Substance: LEVONORGESTREL
     Indication: CONTRACEPTION
     Dosage: 20 MCG/24HR, CONT
     Route: 015
     Dates: start: 20111020, end: 20141210

REACTIONS (5)
  - Complication of device removal [None]
  - Device breakage [None]
  - Pelvic pain [None]
  - Drug diversion [None]
  - Embedded device [None]

NARRATIVE: CASE EVENT DATE: 20141210
